FAERS Safety Report 22805266 (Version 2)
Quarter: 2024Q3

REPORT INFORMATION
  Report Type: Report from Study
  Country: HN (occurrence: HN)
  Receive Date: 20230809
  Receipt Date: 20240820
  Transmission Date: 20241017
  Serious: Yes (Disabling, Other)
  Sender: MYLAN
  Company Number: HN-MYLANLABS-2023M1083243

PATIENT
  Age: 79 Year
  Sex: Male

DRUGS (5)
  1. LIPITOR [Suspect]
     Active Substance: ATORVASTATIN CALCIUM
     Indication: Blood triglycerides abnormal
     Dosage: 20 MILLIGRAM, QD (1 TABLET DAILY)
     Route: 048
     Dates: start: 20230614, end: 202312
  2. LIPITOR [Suspect]
     Active Substance: ATORVASTATIN CALCIUM
     Indication: Blood cholesterol
  3. NORVASC [Suspect]
     Active Substance: AMLODIPINE BESYLATE
     Indication: Blood pressure abnormal
     Dosage: 10 MILLIGRAM, QD (1 TABLET DAILY)
     Route: 048
     Dates: start: 20230614
  4. EFINEX [Concomitant]
     Indication: Diabetes mellitus
     Dosage: 1 DOSAGE FORM, QD (STARTED HALF A YEAR AGO AND ENDED 6 MONTHS AGO)
     Route: 048
  5. Controlip [Concomitant]
     Indication: Blood cholesterol
     Dosage: 1 DOSAGE FORM, QD (1 TABLET DAILY)
     Route: 048

REACTIONS (4)
  - Hypoacusis [Not Recovered/Not Resolved]
  - Diabetic hyperosmolar coma [Not Recovered/Not Resolved]
  - Renal failure [Not Recovered/Not Resolved]
  - Weight abnormal [Unknown]

NARRATIVE: CASE EVENT DATE: 20240812
